FAERS Safety Report 9003478 (Version 3)
Quarter: 2013Q3

REPORT INFORMATION
  Report Type: Spontaneous
  Country: US (occurrence: US)
  Receive Date: 20130108
  Receipt Date: 20130705
  Transmission Date: 20140515
  Serious: Yes (Other)
  Sender: FDA-Public Use
  Company Number: CHPA2013US000609

PATIENT
  Age: 48 Year
  Sex: Female

DRUGS (1)
  1. VOLTAREN GEL [Suspect]
     Indication: PROCEDURAL PAIN
     Dosage: 4 G, BID
     Route: 061

REACTIONS (3)
  - Arthritis [Unknown]
  - Off label use [Unknown]
  - Therapeutic response unexpected [Unknown]
